FAERS Safety Report 9346834 (Version 3)
Quarter: 2013Q3

REPORT INFORMATION
  Report Type: Report from Study
  Country: US (occurrence: US)
  Receive Date: 20130613
  Receipt Date: 20130703
  Transmission Date: 20140515
  Serious: Yes (Other)
  Sender: FDA-Public Use
  Company Number: US-ABBOTT-13P-163-1100714-00

PATIENT
  Age: 63 Year
  Sex: Female

DRUGS (12)
  1. HUMIRA [Suspect]
     Indication: CROHN^S DISEASE
     Dates: start: 201302, end: 20130508
  2. IMURAN [Concomitant]
     Indication: CROHN^S DISEASE
  3. ATENOLOL [Concomitant]
     Indication: HEART RATE IRREGULAR
  4. ZOCOR [Concomitant]
     Indication: BLOOD CHOLESTEROL ABNORMAL
  5. DEXILANT [Concomitant]
     Indication: GASTROOESOPHAGEAL REFLUX DISEASE
  6. ZOFRAN [Concomitant]
     Indication: NAUSEA
  7. ALIGN [Concomitant]
     Indication: GASTROINTESTINAL DISORDER
  8. ZOLOFT [Concomitant]
     Indication: DEPRESSION
  9. FERROUS SULFATE [Concomitant]
     Indication: ANAEMIA
  10. VITAMIN D NOS [Concomitant]
     Indication: ANAEMIA
  11. TACLONEX [Concomitant]
     Indication: PSORIASIS
     Dosage: DAILY ON ELBOWS
     Route: 061
  12. VICODIN [Concomitant]
     Indication: PAIN
     Dosage: 5/500 MG, ONE-HALF TAB

REACTIONS (5)
  - Rectocele [Recovered/Resolved]
  - Tooth abscess [Recovered/Resolved]
  - Restless legs syndrome [Recovering/Resolving]
  - Impaired healing [Not Recovered/Not Resolved]
  - Inflammation of wound [Not Recovered/Not Resolved]
